FAERS Safety Report 5083240-0 (Version None)
Quarter: 2006Q3

REPORT INFORMATION
  Report Type: 
  Country: None (occurrence: None)
  Receive Date: 20060720
  Receipt Date: 20060509
  Transmission Date: 20061208
  Serious: Yes (Hospitalization)
  Sender: FDA-Public Use
  Company Number: 2006063508

PATIENT
  Age: 72 Year
  Sex: Female
  Weight: 77.1115 kg

DRUGS (1)
  1. CELEBREX [Suspect]
     Indication: ARTHRALGIA
     Dosage: 400 MG (400 MG,1 IN 1 D)
     Dates: start: 20011008, end: 20030829

REACTIONS (2)
  - AORTIC STENOSIS [None]
  - CEREBROVASCULAR ACCIDENT [None]
